FAERS Safety Report 9161630 (Version 2)
Quarter: 2014Q4

REPORT INFORMATION
  Report Type: Report from Study
  Country: JP (occurrence: JP)
  Receive Date: 20130313
  Receipt Date: 20141209
  Transmission Date: 20150529
  Serious: Yes (Other)
  Sender: FDA-Public Use
  Company Number: PHHY2012JP128064

PATIENT
  Age: 43 Year
  Sex: Male
  Weight: 52 kg

DRUGS (2)
  1. ALESION [Concomitant]
     Active Substance: EPINASTINE HYDROCHLORIDE
     Indication: RHINITIS ALLERGIC
     Dosage: 20 MG, UNK
     Route: 048
     Dates: end: 20120508
  2. GILENYA [Suspect]
     Active Substance: FINGOLIMOD HYDROCHLORIDE
     Indication: MULTIPLE SCLEROSIS
     Dosage: 0.5 MG, QD
     Route: 048
     Dates: start: 20101208, end: 20120508

REACTIONS (7)
  - Epilepsy [Unknown]
  - White blood cell count decreased [Unknown]
  - Lymphocyte percentage decreased [Unknown]
  - Neutrophil percentage increased [Unknown]
  - Alanine aminotransferase increased [Unknown]
  - Aspartate aminotransferase increased [Unknown]
  - Gamma-glutamyltransferase increased [Unknown]

NARRATIVE: CASE EVENT DATE: 20120301
